FAERS Safety Report 12840654 (Version 2)
Quarter: 2016Q4

REPORT INFORMATION
  Report Type: Spontaneous
  Country: IT (occurrence: IT)
  Receive Date: 20161012
  Receipt Date: 20161103
  Transmission Date: 20170207
  Serious: Yes (Other)
  Sender: FDA-Public Use
  Company Number: PHHY2016IT138099

PATIENT
  Age: 28 Year
  Sex: Male

DRUGS (2)
  1. AMOXICILLIN. [Suspect]
     Active Substance: AMOXICILLIN
     Indication: TOOTH ABSCESS
     Route: 048
     Dates: start: 20160730, end: 20160803
  2. AUGMENTIN [Suspect]
     Active Substance: AMOXICILLIN\CLAVULANATE POTASSIUM
     Indication: TOOTH ABSCESS
     Dosage: 4 DF, QD
     Route: 048
     Dates: start: 20160804, end: 20160805

REACTIONS (3)
  - Erythema [Unknown]
  - Pruritus [Unknown]
  - Overdose [Unknown]

NARRATIVE: CASE EVENT DATE: 20160805
